FAERS Safety Report 8369767-4 (Version None)
Quarter: 2012Q2

REPORT INFORMATION
  Report Type: 
  Country: None (occurrence: None)
  Receive Date: 20120518
  Receipt Date: 20120515
  Transmission Date: 20120825
  Serious: Yes (Other)
  Sender: FDA-Public Use
  Company Number: US-PFIZER INC-2010141022

PATIENT
  Sex: Female
  Weight: 53.515 kg

DRUGS (3)
  1. SYNTHROID [Concomitant]
     Indication: HYPOTHYROIDISM
     Dosage: UNK
  2. NEURONTIN [Suspect]
     Indication: BACK INJURY
     Dosage: 300 MG, 3X/DAY
     Route: 048
     Dates: start: 20000101
  3. FLEXERIL [Concomitant]
     Dosage: UNK

REACTIONS (1)
  - LEUKAEMIA [None]
